FAERS Safety Report 6377346-3 (Version None)
Quarter: 2009Q3

REPORT INFORMATION
  Report Type: 
  Country: None (occurrence: None)
  Receive Date: 20090923
  Receipt Date: 20090923
  Transmission Date: 20100115
  Serious: Yes (Death, Hospitalization)
  Sender: FDA-Public Use
  Company Number: None

PATIENT
  Age: 57 Year
  Sex: Male
  Weight: 77.3 kg

DRUGS (13)
  1. HYDRALAZINE HCL [Suspect]
     Indication: HYPERTENSION
     Dosage: 10MG Q8 PO  PRIOR TO 4/09
     Route: 048
     Dates: start: 20090401
  2. ALLOPURINOL [Concomitant]
  3. FOLATE [Concomitant]
  4. GLIMEPIRIDE [Concomitant]
  5. ASPIRIN [Concomitant]
  6. ISOSORBIDE DINITRATE [Concomitant]
  7. CARVEDILOL [Concomitant]
  8. FUROSEMIDE [Concomitant]
  9. ATORVASTATIN [Concomitant]
  10. LOPERAMIDE [Concomitant]
  11. NIACIN [Concomitant]
  12. CLOPIDOGREL [Concomitant]
  13. SILDENAFIL CITRATE [Concomitant]

REACTIONS (4)
  - ANAEMIA [None]
  - BLOOD CREATININE ABNORMAL [None]
  - ELECTROMECHANICAL DISSOCIATION [None]
  - THROMBOCYTOPENIA [None]
